FAERS Safety Report 9906603 (Version 2)
Quarter: 2014Q2

REPORT INFORMATION
  Report Type: Spontaneous
  Country: US (occurrence: US)
  Receive Date: 20140218
  Receipt Date: 20140417
  Transmission Date: 20141212
  Serious: Yes (Hospitalization, Other)
  Sender: FDA-Public Use
  Company Number: US-UCBSA-112811

PATIENT
  Age: 61 Year
  Sex: Female

DRUGS (3)
  1. OMEPRAZOLE [Suspect]
     Indication: GASTRITIS
     Dates: start: 2012, end: 2012
  2. RABEPRAZOLE [Suspect]
     Dosage: 20 MG DAILY
     Dates: start: 2012
  3. RANITIDINE [Concomitant]
     Indication: GASTRITIS
     Dosage: 20 MG DAILY

REACTIONS (1)
  - Drug-induced liver injury [Recovered/Resolved]
